FAERS Safety Report 6890806-1 (Version None)
Quarter: 2010Q3

REPORT INFORMATION
  Report Type: 
  Country: None (occurrence: None)
  Receive Date: 20100731
  Receipt Date: 20090324
  Transmission Date: 20110219
  Serious: No
  Sender: FDA-Public Use
  Company Number: US-PFIZER INC-2009155728

PATIENT
  Age: 56 Year
  Sex: Male

DRUGS (1)
  1. LIPITOR [Suspect]
     Dosage: 40 MG, 1X/DAY
     Dates: start: 20081010, end: 20081220

REACTIONS (2)
  - ARTHRALGIA [None]
  - PAIN IN EXTREMITY [None]
